FAERS Safety Report 18693678 (Version 1)
Quarter: 2021Q1

REPORT INFORMATION
  Report Type: Spontaneous
  Country: SI (occurrence: SI)
  Receive Date: 20210104
  Receipt Date: 20210104
  Transmission Date: 20210419
  Serious: Yes (Hospitalization, Other)
  Sender: FDA-Public Use
  Company Number: SI-SA-2020SA376677

PATIENT

DRUGS (14)
  1. SEVELAMER SALT NOT SPECIFIED [Suspect]
     Active Substance: SEVELAMER
     Dosage: 4 DF, TID(3 X 4 TBL WITH FOOD)
  2. DIGOXIN. [Concomitant]
     Active Substance: DIGOXIN
     Dosage: UNK
     Route: 065
  3. FOLIC ACID. [Suspect]
     Active Substance: FOLIC ACID
     Dosage: UNK (2 X 1 TBL)
  4. ALFACALCIDOL [Suspect]
     Active Substance: ALFACALCIDOL
     Dosage: 0.5 UG
  5. PARACETAMOL [Suspect]
     Active Substance: ACETAMINOPHEN
     Dosage: 500 MG, PRN AS NEEDED
  6. CEFTRIAXONE SODIUM. [Suspect]
     Active Substance: CEFTRIAXONE SODIUM
     Dosage: 2 G (FOR 24 HOURS)
     Route: 042
  7. NOLPAZA [Suspect]
     Active Substance: PANTOPRAZOLE SODIUM
     Dosage: 20 MG
  8. BISOPROLOL FUMARATE. [Suspect]
     Active Substance: BISOPROLOL FUMARATE
     Dosage: 2.5 MG (IN THE MORNING)
  9. ARANESP [Suspect]
     Active Substance: DARBEPOETIN ALFA
     Dosage: (100 + 150 MCG EVERY 14 DAY)
  10. ZOLPIDEM TARTRATE. [Suspect]
     Active Substance: ZOLPIDEM TARTRATE
     Dosage: 5 MG (IN THE EVENING)
  11. VANCOMYCIN [Suspect]
     Active Substance: VANCOMYCIN
     Dosage: 1 G
     Route: 042
  12. WARFARIN SODIUM. [Suspect]
     Active Substance: WARFARIN SODIUM
     Dosage: UNK (ACCORDING TO THE SCHEME)
  13. COLECALCIFEROL [Suspect]
     Active Substance: CHOLECALCIFEROL
     Dosage: 1 DF, QM
  14. LACIPIL [Suspect]
     Active Substance: LACIDIPINE
     Dosage: 4 MG

REACTIONS (23)
  - Monocyte count increased [Unknown]
  - PO2 decreased [Unknown]
  - White blood cell count increased [Unknown]
  - Lymphocyte count increased [Unknown]
  - Dysphagia [Unknown]
  - Malaise [Unknown]
  - Splenomegaly [Unknown]
  - Platelet count decreased [Unknown]
  - Tachycardia [Unknown]
  - Procalcitonin abnormal [Unknown]
  - PCO2 decreased [Unknown]
  - Oxygen saturation decreased [Unknown]
  - International normalised ratio increased [Unknown]
  - Hypotension [Recovered/Resolved]
  - C-reactive protein increased [Unknown]
  - Device related sepsis [Unknown]
  - Asthenia [Unknown]
  - Encephalomalacia [Unknown]
  - Haematocrit decreased [Unknown]
  - Dysarthria [Unknown]
  - Laboratory test abnormal [Unknown]
  - Heart rate increased [Recovered/Resolved]
  - Cough [Unknown]

NARRATIVE: CASE EVENT DATE: 202009
